FAERS Safety Report 9029455 (Version 1)
Quarter: 2013Q1

REPORT INFORMATION
  Report Type: Report from Study
  Country: DE (occurrence: DE)
  Receive Date: 20130125
  Receipt Date: 20130125
  Transmission Date: 20140127
  Serious: Yes (Congenital Anomaly)
  Sender: FDA-Public Use
  Company Number: PHHY2013DE006809

PATIENT
  Sex: 0

DRUGS (2)
  1. LEPONEX [Suspect]
     Dosage: 400 MG, QD
     Route: 064
  2. PAROXETINE [Suspect]
     Dosage: 40 MG, QD
     Route: 064

REACTIONS (3)
  - Renal aplasia [Unknown]
  - Renal hypoplasia [Unknown]
  - Pulmonary hypoplasia [Unknown]
